FAERS Safety Report 22040724 (Version 3)
Quarter: 2023Q1

REPORT INFORMATION
  Report Type: Spontaneous
  Country: ES (occurrence: ES)
  Receive Date: 20230227
  Receipt Date: 20230309
  Transmission Date: 20230418
  Serious: Yes (Death, Hospitalization, Other)
  Sender: FDA-Public Use
  Company Number: ES-Accord-300694

PATIENT
  Age: 72 Year
  Sex: Female

DRUGS (4)
  1. RITUXIMAB [Suspect]
     Active Substance: RITUXIMAB
     Dosage: 375 MG/M2
     Route: 042
  2. GEMCITABINE HYDROCHLORIDE [Suspect]
     Active Substance: GEMCITABINE HYDROCHLORIDE
     Dosage: 1000 MG/M2
     Route: 042
  3. CISPLATIN [Suspect]
     Active Substance: CISPLATIN
     Dosage: 75 MG/M2
     Route: 042
  4. DEXAMETHASONE [Suspect]
     Active Substance: DEXAMETHASONE
     Dosage: 40 MG
     Route: 042

REACTIONS (1)
  - Stress cardiomyopathy [Fatal]
